FAERS Safety Report 9051739 (Version 2)
Quarter: 2013Q3

REPORT INFORMATION
  Report Type: Spontaneous
  Country: US (occurrence: US)
  Receive Date: 20130207
  Receipt Date: 20130709
  Transmission Date: 20140515
  Serious: No
  Sender: FDA-Public Use
  Company Number: US-BIOGENIDEC-2013BI010734

PATIENT
  Age: 67 Year
  Sex: Female

DRUGS (2)
  1. TYSABRI [Suspect]
     Indication: MULTIPLE SCLEROSIS
     Route: 042
     Dates: start: 20080820, end: 20081210
  2. COPAXONE [Concomitant]

REACTIONS (7)
  - Coordination abnormal [Not Recovered/Not Resolved]
  - Blindness [Not Recovered/Not Resolved]
  - Burning sensation [Recovered/Resolved]
  - Pain [Recovered/Resolved]
  - Hearing impaired [Recovered/Resolved]
  - Mobility decreased [Recovered/Resolved]
  - Pruritus [Recovered/Resolved]
